FAERS Safety Report 7914468-7 (Version None)
Quarter: 2011Q4

REPORT INFORMATION
  Report Type: 
  Country: None (occurrence: None)
  Receive Date: 20111110
  Receipt Date: 20111028
  Transmission Date: 20120403
  Serious: Yes (Death, Hospitalization)
  Sender: FDA-Public Use
  Company Number: 2011MA012726

PATIENT
  Age: 72 Year
  Sex: Male
  Weight: 90.7194 kg

DRUGS (24)
  1. TRICOR [Concomitant]
  2. AMOXICILLIN [Concomitant]
  3. ZANTAC [Concomitant]
  4. MAGNESIUM HYDROXIDE TAB [Concomitant]
  5. PNEUMOVAX 23 [Concomitant]
  6. ACIPHEX [Concomitant]
  7. IV FLUIDS [Concomitant]
  8. DIGOXIN [Suspect]
     Indication: HEART RATE IRREGULAR
     Dosage: 0.25 MG;QD;PO
     Route: 048
     Dates: start: 20000915, end: 20070801
  9. ACETAMINOPHEN AND HYDROCODONE BITARTRATE [Concomitant]
  10. PRILOSEC [Concomitant]
  11. CAPOTEN [Concomitant]
  12. CARAFATE [Concomitant]
  13. PAROXETINE HCL [Concomitant]
  14. VIOXX [Concomitant]
  15. DIAZEPAM [Concomitant]
  16. LIPITOR [Concomitant]
  17. CEFUROXIME AXETIL [Concomitant]
  18. DOXYCYCLINE [Concomitant]
  19. NIASPAN [Concomitant]
  20. LORTAB [Concomitant]
  21. HYDROCODONE BITARTRATE [Concomitant]
  22. ZYMAR [Concomitant]
  23. ALPRAZOLAM [Concomitant]
  24. IRON [Concomitant]

REACTIONS (49)
  - NAUSEA [None]
  - VISION BLURRED [None]
  - ARTHROPOD BITE [None]
  - DUODENAL ULCER [None]
  - CARDIAC FAILURE CONGESTIVE [None]
  - DRUG DEPENDENCE [None]
  - RECTAL HAEMORRHAGE [None]
  - HAEMORRHOIDS [None]
  - DEEP VEIN THROMBOSIS [None]
  - FIBRIN D DIMER INCREASED [None]
  - GASTRITIS [None]
  - MYOCARDIAL INFARCTION [None]
  - MENTAL DISORDER [None]
  - ANAEMIA [None]
  - HYPOTENSION [None]
  - HYPERTRIGLYCERIDAEMIA [None]
  - PULMONARY EMBOLISM [None]
  - ATRIOVENTRICULAR BLOCK FIRST DEGREE [None]
  - HYPERLIPIDAEMIA [None]
  - AGITATION [None]
  - ASTHENIA [None]
  - DISCOMFORT [None]
  - GASTRIC ULCER [None]
  - GASTRITIS EROSIVE [None]
  - DUODENITIS [None]
  - DIABETES MELLITUS [None]
  - HYPERVENTILATION [None]
  - DEPRESSION [None]
  - TYPE 2 DIABETES MELLITUS [None]
  - ATRIAL FIBRILLATION [None]
  - EMOTIONAL DISORDER [None]
  - ECONOMIC PROBLEM [None]
  - ANXIETY [None]
  - MYALGIA [None]
  - MULTIPLE INJURIES [None]
  - GLUCOSE TOLERANCE IMPAIRED [None]
  - GASTROOESOPHAGEAL REFLUX DISEASE [None]
  - DEHYDRATION [None]
  - HYPERTENSION [None]
  - PALPITATIONS [None]
  - BACK PAIN [None]
  - TACHYARRHYTHMIA [None]
  - ARTHRALGIA [None]
  - DYSPEPSIA [None]
  - COLONIC POLYP [None]
  - UPPER GASTROINTESTINAL HAEMORRHAGE [None]
  - CONSTIPATION [None]
  - AORTIC ARTERIOSCLEROSIS [None]
  - BLOOD GLUCOSE INCREASED [None]
